FAERS Safety Report 9921662 (Version 1)
Quarter: 2014Q1

REPORT INFORMATION
  Report Type: Not Available
  Country: FR (occurrence: FR)
  Receive Date: 20140225
  Receipt Date: 20140225
  Transmission Date: 20141002
  Serious: Yes (Hospitalization)
  Sender: FDA-Public Use
  Company Number: FR-ASTELLAS-2014EU001481

PATIENT
  Age: 70 Year
  Sex: Male

DRUGS (12)
  1. XTANDI [Suspect]
     Indication: PROSTATE CANCER METASTATIC
     Dosage: 4 DF, UNKNOWN/D
     Route: 048
     Dates: start: 20131129, end: 20140204
  2. CYMBALTA [Suspect]
     Dosage: 30 MG, UNKNOWN/D
     Route: 048
     Dates: end: 20140204
  3. FLECAINE [Suspect]
     Dosage: 30 MG, UNKNOWN/D
     Route: 048
  4. PREDNISONE [Concomitant]
     Dosage: 10 MG, UID/QD
     Route: 065
  5. OXYCONTIN [Concomitant]
     Dosage: 30 MG, BID
     Route: 065
  6. OXYNORM [Concomitant]
     Dosage: 4 DF, UNKNOWN/D
     Route: 065
  7. INEXIUM                            /01479302/ [Concomitant]
     Dosage: 1 DF, UID/QD
     Route: 065
  8. HEPTAMYL [Concomitant]
     Dosage: 1 DF, TID
     Route: 065
  9. TARDYFERON [Concomitant]
     Dosage: 1 DF, UID/QD
  10. PARACETAMOL [Concomitant]
     Dosage: UNK
     Route: 065
  11. ENANTONE                           /00726901/ [Concomitant]
     Dosage: UNK
     Route: 065
  12. ZOMETA [Concomitant]
     Dosage: UNK
     Route: 042

REACTIONS (3)
  - Dyspnoea [Not Recovered/Not Resolved]
  - Myalgia [Not Recovered/Not Resolved]
  - Blood creatine phosphokinase increased [Not Recovered/Not Resolved]
